FAERS Safety Report 8931540 (Version 1)
Quarter: 2012Q4

REPORT INFORMATION
  Report Type: 
  Country: DE (occurrence: DE)
  Receive Date: 20121128
  Receipt Date: 20121128
  Transmission Date: 20130627
  Serious: Yes (Death, Other)
  Sender: FDA-Public Use
  Company Number: DE-ACTELION-A-CH2012-75216

PATIENT
  Age: 14 Year
  Sex: Female

DRUGS (1)
  1. ZAVESCA [Suspect]
     Indication: NIEMANN-PICK DISEASE
     Dosage: UNK
     Route: 048

REACTIONS (2)
  - Encephalopathy [Fatal]
  - Epilepsy [Fatal]
